FAERS Safety Report 7853096-9 (Version None)
Quarter: 2011Q3

REPORT INFORMATION
  Report Type: 
  Country: None (occurrence: None)
  Receive Date: 20110915
  Receipt Date: 20110428
  Transmission Date: 20111222
  Serious: Yes (Other)
  Sender: FDA-Public Use
  Company Number: 2011028382

PATIENT
  Sex: Male
  Weight: 93 kg

DRUGS (2)
  1. PRIVIGEN [Suspect]
  2. PRIVIGEN [Suspect]
     Indication: IMMUNODEFICIENCY COMMON VARIABLE
     Dosage: SEE IMAGE
     Route: 042

REACTIONS (4)
  - VOMITING [None]
  - MENINGITIS ASEPTIC [None]
  - HEADACHE [None]
  - BACK PAIN [None]
